FAERS Safety Report 23787189 (Version 1)
Quarter: 2024Q2

REPORT INFORMATION
  Report Type: Spontaneous
  Country: FR (occurrence: FR)
  Receive Date: 20240426
  Receipt Date: 20240426
  Transmission Date: 20240716
  Serious: Yes (Hospitalization)
  Sender: FDA-Public Use
  Company Number: FR-SUN PHARMACEUTICAL INDUSTRIES LTD-2024RR-443966

PATIENT
  Age: 27 Year
  Sex: Female
  Weight: 90 kg

DRUGS (3)
  1. RISPERIDONE [Suspect]
     Active Substance: RISPERIDONE
     Indication: Schizophrenia
     Dosage: 7 MILLIGRAM, DAILY
     Route: 048
     Dates: start: 20220823
  2. SERTRALINE [Suspect]
     Active Substance: SERTRALINE HYDROCHLORIDE
     Indication: Depression
     Dosage: 100 MILLIGRAM, DAILY
     Route: 048
     Dates: start: 20220705
  3. LOXAPINE [Suspect]
     Active Substance: LOXAPINE
     Indication: Schizophrenia
     Dosage: 50 MILLIGRAM, DAILY
     Route: 048
     Dates: start: 20220823

REACTIONS (2)
  - Hepatic steatosis [Not Recovered/Not Resolved]
  - Hepatocellular injury [Not Recovered/Not Resolved]

NARRATIVE: CASE EVENT DATE: 20240130
